FAERS Safety Report 5794276-6 (Version None)
Quarter: 2008Q2

REPORT INFORMATION
  Report Type: 
  Country: None (occurrence: None)
  Receive Date: 20080625
  Receipt Date: 20080609
  Transmission Date: 20081010
  Serious: No
  Sender: FDA-Public Use
  Company Number: SP1200800285

PATIENT
  Age: 22 Year
  Sex: Female

DRUGS (1)
  1. AMITIZA [Suspect]
     Indication: CONSTIPATION
     Dosage: 24 MCG, BID, ORAL
     Route: 048
     Dates: start: 20070101, end: 20070101

REACTIONS (2)
  - BLOOD PRESSURE DECREASED [None]
  - DYSPNOEA [None]
